FAERS Safety Report 4264441-8 (Version None)
Quarter: 2004Q1

REPORT INFORMATION
  Report Type: 
  Country: None (occurrence: None)
  Receive Date: 20040106
  Receipt Date: 20031224
  Transmission Date: 20041129
  Serious: Yes (Hospitalization)
  Sender: FDA-Public Use
  Company Number: JP-GLAXOSMITHKLINE-B0318574A

PATIENT
  Age: 68 Year
  Sex: Male

DRUGS (2)
  1. PAXIL [Suspect]
     Indication: DEPRESSIVE SYMPTOM
     Dosage: 20MG PER DAY
     Route: 048
     Dates: start: 20031210, end: 20031213
  2. D-CHLORPHENIRAMINE MALEATE [Concomitant]
     Dates: start: 20031210, end: 20031213

REACTIONS (1)
  - ASCITES [None]
